FAERS Safety Report 24331901 (Version 2)
Quarter: 2024Q3

REPORT INFORMATION
  Report Type: Report from Study
  Country: US (occurrence: US)
  Receive Date: 20240918
  Receipt Date: 20240925
  Transmission Date: 20241017
  Serious: Yes (Other)
  Sender: ABBVIE
  Company Number: US-ABBVIE-5647151

PATIENT
  Age: 65 Year
  Sex: Female
  Weight: 54.431 kg

DRUGS (13)
  1. SKYRIZI [Suspect]
     Active Substance: RISANKIZUMAB-RZAA
     Indication: Crohn^s disease
     Dosage: AND THEN EVERY 8 WEEKS, 360 MG /2.4 ML INSERT 1 CARTRIDGE INTO ON BODY INJECTOR STARTING AT WEEK ...
     Route: 058
     Dates: start: 20230824
  2. CALCIUM [Concomitant]
     Active Substance: CALCIUM
     Indication: Product used for unknown indication
  3. SKYRIZI [Suspect]
     Active Substance: RISANKIZUMAB-RZAA
     Indication: Crohn^s disease
     Dosage: WEEK 8
     Route: 042
     Dates: start: 20230727, end: 20230727
  4. SKYRIZI [Suspect]
     Active Substance: RISANKIZUMAB-RZAA
     Indication: Crohn^s disease
     Dosage: WEEK 4
     Route: 042
     Dates: start: 20230629, end: 20230629
  5. SKYRIZI [Suspect]
     Active Substance: RISANKIZUMAB-RZAA
     Indication: Crohn^s disease
     Dosage: WEEK 0
     Route: 042
     Dates: start: 20230601, end: 20230601
  6. COLESTIPOL [Concomitant]
     Active Substance: COLESTIPOL
     Indication: Crohn^s disease
     Dosage: 1 GRAM
  7. VITAMIN B12 [Concomitant]
     Active Substance: CYANOCOBALAMIN
     Indication: Product used for unknown indication
  8. VITAMIN B3 [Concomitant]
     Active Substance: NIACIN
     Indication: Product used for unknown indication
  9. ESTRADIOL [Concomitant]
     Active Substance: ESTRADIOL
     Indication: Product used for unknown indication
  10. PROMETRIUM [Concomitant]
     Active Substance: PROGESTERONE
     Indication: Product used for unknown indication
     Dosage: 100 MILLIGRAM
  11. FOLIC ACID [Concomitant]
     Active Substance: FOLIC ACID
     Indication: Product used for unknown indication
  12. CALCIUM CITRATE [Concomitant]
     Active Substance: CALCIUM CITRATE
     Indication: Product used for unknown indication
     Dosage: 650 MG
  13. UNSPECIFIED INGREDIENT [Suspect]
     Active Substance: UNSPECIFIED INGREDIENT
     Indication: Product used for unknown indication
     Route: 065
     Dates: start: 20240103

REACTIONS (13)
  - Eye disorder [Recovered/Resolved]
  - Disturbance in attention [Not Recovered/Not Resolved]
  - Eye movement disorder [Not Recovered/Not Resolved]
  - Crohn^s disease [Recovered/Resolved]
  - Eye disorder [Recovered/Resolved]
  - Dizziness [Not Recovered/Not Resolved]
  - Eye disorder [Recovered/Resolved]
  - Binocular eye movement disorder [Not Recovered/Not Resolved]
  - Eye disorder [Recovered/Resolved]
  - Eye disorder [Recovered/Resolved]
  - Metamorphopsia [Not Recovered/Not Resolved]
  - Haematochezia [Recovered/Resolved]
  - Gastrointestinal sounds abnormal [Recovered/Resolved]

NARRATIVE: CASE EVENT DATE: 20230601
